FAERS Safety Report 9180304 (Version 1)
Quarter: 2013Q1

REPORT INFORMATION
  Report Type: Spontaneous
  Country: US (occurrence: US)
  Receive Date: 20130322
  Receipt Date: 20130322
  Transmission Date: 20140127
  Serious: No
  Sender: FDA-Public Use
  Company Number: US-009507513-1303USA005313

PATIENT
  Age: 29 None
  Sex: Female
  Weight: 113.38 kg

DRUGS (1)
  1. IMPLANON [Suspect]
     Indication: CONTRACEPTION
     Dosage: ONE ROD UP TO 3 YEARS
     Route: 059
     Dates: start: 20100604

REACTIONS (4)
  - Toe operation [Unknown]
  - Central venous catheterisation [Unknown]
  - Pain in extremity [Unknown]
  - Sensation of pressure [Unknown]
